FAERS Safety Report 8528645 (Version 2)
Quarter: 2013Q2

REPORT INFORMATION
  Report Type: Spontaneous
  Country: US (occurrence: US)
  Receive Date: 20120424
  Receipt Date: 20130628
  Transmission Date: 20140414
  Serious: Yes (Other)
  Sender: FDA-Public Use
  Company Number: CHPA2012US009155

PATIENT
  Age: 70 Year
  Sex: Male

DRUGS (1)
  1. EXCEDRIN EXTRA STRENGTH [Suspect]
     Indication: PAIN
     Dosage: UP TO 4, PRETTY MUCH EVERYDAY
     Route: 048
     Dates: start: 1982

REACTIONS (2)
  - Arterial occlusive disease [Unknown]
  - Off label use [Unknown]
